FAERS Safety Report 9252181 (Version 1)
Quarter: 2013Q1

REPORT INFORMATION
  Report Type: Spontaneous
  Country: US (occurrence: None)
  Receive Date: 20130305
  Receipt Date: 20130305
  Transmission Date: 20140127
  Serious: Yes (Hospitalization, Disabling)
  Sender: FDA-Public Use
  Company Number: 163-21880-12091099

PATIENT
  Age: 70 Year
  Sex: Female
  Weight: 63.05 kg

DRUGS (13)
  1. REVLIMID [Suspect]
     Indication: PLASMA CELL MYELOMA
     Route: 048
     Dates: start: 20120815
  2. BENADRYL (CLONALIN) [Concomitant]
  3. DRONABINOL [Concomitant]
  4. FLEXERIL (CYCLOBENZAPRINE HYDROCHLORIDE) [Concomitant]
  5. LEXAPRO (ESCITALOPRAM OXALATE) [Concomitant]
  6. MEGACE (MEGESTROL ACETATE) [Concomitant]
  7. METROGEL (METRONIDAZOLE) [Concomitant]
  8. VITAMINS [Concomitant]
  9. POTASSIUM (POTASSIUM) [Concomitant]
  10. TRAMADOL (TRAMADOL) [Concomitant]
  11. VITAMIN D (ERGOCALCIFEROL) [Concomitant]
  12. XANAX (ALPRAZOLAM) [Concomitant]
  13. SOTALOL [Concomitant]

REACTIONS (6)
  - Pneumonia [None]
  - Pruritus [None]
  - Erythema [None]
  - Rash generalised [None]
  - Stomatitis [None]
  - Oral mucosal erythema [None]
